FAERS Safety Report 7206222-9 (Version None)
Quarter: 2010Q4

REPORT INFORMATION
  Report Type: 
  Country: None (occurrence: None)
  Receive Date: 20101217
  Receipt Date: 20101203
  Transmission Date: 20110411
  Serious: Yes (Other)
  Sender: FDA-Public Use
  Company Number: DSU-2010-05105

PATIENT
  Sex: Male

DRUGS (3)
  1. OLMETEC PLUS (HYDROCHLOROTHIAZIDE, OLMESARTAN MEDOXOMIL) (TABLET) (HYD [Suspect]
     Indication: HYPERTENSION
     Dosage: 40/25 MG, PER ORAL; 40/25 MG, PER ORAL
     Dates: end: 20100101
  2. OLMETEC PLUS (HYDROCHLOROTHIAZIDE, OLMESARTAN MEDOXOMIL) (TABLET) (HYD [Suspect]
     Indication: HYPERTENSION
     Dosage: 40/25 MG, PER ORAL; 40/25 MG, PER ORAL
     Dates: start: 20100201, end: 20100201
  3. BETA BLOCKER (INGREDIENTS UNKNOWN) (BETA BLOCKING AGENTS) [Suspect]
     Indication: ISCHAEMIA
     Dates: end: 20100101

REACTIONS (8)
  - BLOOD PRESSURE INADEQUATELY CONTROLLED [None]
  - COUGH [None]
  - DIARRHOEA [None]
  - FATIGUE [None]
  - ISCHAEMIA [None]
  - NEPHROLITHIASIS [None]
  - RENAL IMPAIRMENT [None]
  - TOTAL LUNG CAPACITY DECREASED [None]
